FAERS Safety Report 8756933 (Version 4)
Quarter: 2013Q4

REPORT INFORMATION
  Report Type: Report from Study
  Country: JP (occurrence: JP)
  Receive Date: 20120828
  Receipt Date: 20131022
  Transmission Date: 20140711
  Serious: Yes (Other)
  Sender: FDA-Public Use
  Company Number: JP-VERTEX PHARMACEUTICAL INC.-AE-2012-009871

PATIENT
  Age: 58 Year
  Sex: Female

DRUGS (21)
  1. VX-950 (TELAPREVIR) [Suspect]
     Indication: CHRONIC HEPATITIS C
     Dosage: 1500 MG, QD
     Route: 048
     Dates: start: 20120514, end: 20120730
  2. REBETOL [Suspect]
     Indication: CHRONIC HEPATITIS C
     Dosage: 600 MG, QD
     Route: 048
     Dates: start: 20120514, end: 20120527
  3. REBETOL [Suspect]
     Dosage: 400 MG, QD
     Route: 048
     Dates: start: 20120528, end: 20120604
  4. REBETOL [Suspect]
     Dosage: 200 MG, QD
     Route: 048
     Dates: start: 20120605, end: 20120730
  5. REBETOL [Suspect]
     Dosage: 200 MG, QD
     Route: 048
     Dates: start: 20120814, end: 20120826
  6. REBETOL [Suspect]
     Dosage: 200 MG, QD
     Route: 048
     Dates: start: 20120904, end: 20121001
  7. REBETOL [Suspect]
     Dosage: 400 MG, QD
     Route: 048
     Dates: start: 20121002, end: 20121029
  8. PEGINTRON [Suspect]
     Indication: CHRONIC HEPATITIS C
     Dosage: 1.4 ?G/KG, QW
     Route: 058
     Dates: start: 20120514
  9. PEGINTRON [Suspect]
     Dosage: 1.5 ?G/KG, QW
     Route: 058
     Dates: end: 20120717
  10. PEGINTRON [Suspect]
     Dosage: 0.9 ?G/KG, QW
     Route: 058
     Dates: start: 20120724, end: 20120724
  11. PEGINTRON [Suspect]
     Dosage: 0.9 ?G/KG, QW
     Route: 058
     Dates: start: 20120814, end: 20120821
  12. PEGINTRON [Suspect]
     Dosage: 0.9 ?G/KG, QW
     Route: 058
     Dates: start: 20120904, end: 20121023
  13. OLMETEC [Concomitant]
     Dosage: 20 MG, QD
     Route: 048
     Dates: end: 20120527
  14. DIAZEPAM [Concomitant]
     Dosage: 2 MG, QD
     Route: 048
     Dates: end: 20120528
  15. LOXOPROFEN [Concomitant]
     Dosage: 60 MG/DAY, PRN
     Route: 048
     Dates: start: 20120514, end: 20120604
  16. LOXOPROFEN [Concomitant]
     Dosage: 60 MG/DAY, PRN
     Route: 048
     Dates: start: 20120911, end: 20121015
  17. MUCOSTA [Concomitant]
     Dosage: 100 MG/DAY, PRN
     Route: 048
     Dates: start: 20120514, end: 20120604
  18. MUCOSTA [Concomitant]
     Dosage: 100 MG/DAY, PRN
     Dates: start: 20120724, end: 20120730
  19. MUCOSTA [Concomitant]
     Dosage: 100 MG/DAY, PRN
     Route: 048
     Dates: start: 20120911, end: 20121015
  20. GOODMIN [Concomitant]
     Dosage: 0.25 MG, QD
     Route: 048
     Dates: start: 20120612
  21. URDENACIN [Concomitant]
     Dosage: UNK
     Route: 048
     Dates: end: 20120514

REACTIONS (1)
  - Retinopathy [Recovered/Resolved]
